FAERS Safety Report 18917132 (Version 1)
Quarter: 2021Q1

REPORT INFORMATION
  Report Type: Spontaneous
  Country: DE (occurrence: DE)
  Receive Date: 20210219
  Receipt Date: 20210219
  Transmission Date: 20210420
  Serious: No
  Sender: FDA-Public Use
  Company Number: DE-UCBSA-2021008287

PATIENT
  Sex: Male

DRUGS (2)
  1. FERRO SANOL [Concomitant]
     Active Substance: FERROUS GLYCINE SULFATE
     Indication: PRODUCT USED FOR UNKNOWN INDICATION
     Dosage: UNK
  2. NEUPRO [Suspect]
     Active Substance: ROTIGOTINE
     Indication: PRODUCT USED FOR UNKNOWN INDICATION
     Dosage: 3 MILLIGRAM, ONCE DAILY (QD)

REACTIONS (1)
  - Device adhesion issue [Unknown]
